FAERS Safety Report 25714934 (Version 1)
Quarter: 2025Q3

REPORT INFORMATION
  Report Type: Spontaneous
  Country: IL (occurrence: IL)
  Receive Date: 20250822
  Receipt Date: 20250822
  Transmission Date: 20251020
  Serious: Yes (Other)
  Sender: NOVARTIS
  Company Number: IL-002147023-NVSC2025IL127955

PATIENT
  Age: 74 Year
  Sex: Male

DRUGS (1)
  1. PLUVICTO [Suspect]
     Active Substance: LUTETIUM LU-177 VIPIVOTIDE TETRAXETAN
     Indication: Prostate cancer
     Route: 065
     Dates: start: 202409, end: 202506

REACTIONS (2)
  - Metastases to spine [Unknown]
  - Anaemia [Unknown]
